FAERS Safety Report 21562290 (Version 2)
Quarter: 2022Q4

REPORT INFORMATION
  Report Type: Spontaneous
  Country: JP (occurrence: JP)
  Receive Date: 20221107
  Receipt Date: 20221213
  Transmission Date: 20230113
  Serious: Yes (Disabling)
  Sender: FDA-Public Use
  Company Number: JP-ALLERGAN-2232882US

PATIENT
  Sex: Female

DRUGS (3)
  1. ALPHAGAN P [Suspect]
     Active Substance: BRIMONIDINE TARTRATE
     Indication: Glaucoma
     Dosage: 2 GTT
     Route: 047
     Dates: start: 20180228, end: 20220908
  2. TIMOLOL [Concomitant]
     Active Substance: TIMOLOL
     Indication: Glaucoma
     Dosage: 1 GTT, QD
     Route: 047
     Dates: start: 20180228, end: 20220918
  3. HYALURONATE SODIUM [Concomitant]
     Active Substance: HYALURONATE SODIUM
     Indication: Dry eye
     Dosage: 4 GTT, QD
     Route: 047
     Dates: start: 20220407, end: 20220913

REACTIONS (3)
  - Corneal opacity [Recovering/Resolving]
  - Conjunctivitis [Recovered/Resolved]
  - Hyperaemia [Recovering/Resolving]

NARRATIVE: CASE EVENT DATE: 20220706
